FAERS Safety Report 7876997-4 (Version None)
Quarter: 2011Q4

REPORT INFORMATION
  Report Type: 
  Country: None (occurrence: None)
  Receive Date: 20111031
  Receipt Date: 20111024
  Transmission Date: 20120403
  Serious: Yes (Hospitalization, Other)
  Sender: FDA-Public Use
  Company Number: GXBR2011US04782

PATIENT
  Sex: Male
  Weight: 143.76 kg

DRUGS (11)
  1. AMIODARONE HYDROCHLORIDE [Suspect]
     Indication: ATRIAL FIBRILLATION
     Dosage: 200 MG, BID
     Route: 048
     Dates: end: 20110925
  2. SIMVASTATIN [Suspect]
     Indication: ATHEROSCLEROSIS PROPHYLAXIS
     Dosage: UNK MG, UNK
  3. ASPIRIN [Suspect]
     Dosage: UNK MG, UNK
  4. HYDRALAZINE HCL [Concomitant]
     Indication: HYPERTENSION
     Dosage: UNK MG, UNK
  5. TERAZOSIN HCL [Concomitant]
     Indication: PROSTATIC DISORDER
     Dosage: UNK MG, UNK
  6. AMIODARONE HYDROCHLORIDE [Suspect]
     Dosage: 200 MG, QD
     Route: 048
     Dates: start: 20110926
  7. LISINOPRIL [Concomitant]
     Indication: HYPERTENSION
     Dosage: UNK MG, UNK
  8. FAMOTIDINE [Concomitant]
     Indication: GASTROOESOPHAGEAL REFLUX DISEASE
     Dosage: UNK MG, UNK
  9. WARFARIN SODIUM [Suspect]
     Indication: ANTICOAGULANT THERAPY
     Dosage: UNK MG, UNK
  10. PLAVIX [Suspect]
     Indication: ANTICOAGULANT THERAPY
     Dosage: UNK MG, UNK
  11. CARVEDILOL [Concomitant]
     Indication: HYPERTENSION
     Dosage: UNK MG, UNK

REACTIONS (8)
  - VISION BLURRED [None]
  - ANAEMIA [None]
  - RETINAL HAEMORRHAGE [None]
  - FEELING ABNORMAL [None]
  - DRUG INTERACTION [None]
  - RETINAL TEAR [None]
  - HAEMOGLOBIN DECREASED [None]
  - EYE SWELLING [None]
